FAERS Safety Report 14683603 (Version 1)
Quarter: 2018Q1

REPORT INFORMATION
  Report Type: Spontaneous
  Country: US (occurrence: US)
  Receive Date: 20180327
  Receipt Date: 20180327
  Transmission Date: 20180509
  Serious: Yes (Life-Threatening, Hospitalization)
  Sender: FDA-Public Use
  Company Number: PHEH2018US011054

PATIENT
  Age: 60 Year
  Sex: Female
  Weight: 75 kg

DRUGS (10)
  1. CYTARABINE. [Suspect]
     Active Substance: CYTARABINE
     Indication: ACUTE MYELOID LEUKAEMIA
     Dosage: 3500 MG, QD
     Route: 042
     Dates: start: 20180209, end: 20180211
  2. FILGRASTIM [Suspect]
     Active Substance: FILGRASTIM
     Indication: ACUTE MYELOID LEUKAEMIA
     Dosage: UNK
     Route: 058
     Dates: start: 20180208
  3. HYDREA [Concomitant]
     Active Substance: HYDROXYUREA
     Indication: PRODUCT USED FOR UNKNOWN INDICATION
     Dosage: UNK
     Route: 065
     Dates: start: 20180205, end: 20180209
  4. CYTARABINE. [Suspect]
     Active Substance: CYTARABINE
     Dosage: 3500 MG, QD
     Route: 042
     Dates: start: 20180212
  5. ZARXIO [Suspect]
     Active Substance: FILGRASTIM-SNDZ
     Indication: ACUTE MYELOID LEUKAEMIA
     Dosage: 480 UG, QD
     Route: 058
     Dates: start: 20180208
  6. BENADRYL [Suspect]
     Active Substance: DIPHENHYDRAMINE HYDROCHLORIDE
     Indication: PRODUCT USED FOR UNKNOWN INDICATION
     Route: 065
     Dates: start: 201802
  7. ACYCLOVIR. [Concomitant]
     Active Substance: ACYCLOVIR
     Indication: PRODUCT USED FOR UNKNOWN INDICATION
     Dosage: UNK
     Route: 065
     Dates: start: 20170627
  8. FLUDARABINE PHOSPHATE. [Suspect]
     Active Substance: FLUDARABINE PHOSPHATE
     Indication: ACUTE MYELOID LEUKAEMIA
     Dosage: 50 MG, QD
     Route: 042
     Dates: start: 20180209
  9. IDARUBICIN [Suspect]
     Active Substance: IDARUBICIN
     Indication: ACUTE MYELOID LEUKAEMIA
     Dosage: 17.5 MG, QD
     Route: 042
     Dates: start: 20180209, end: 20180212
  10. ALLOPURINOL. [Concomitant]
     Active Substance: ALLOPURINOL
     Indication: PRODUCT USED FOR UNKNOWN INDICATION
     Dosage: UNK
     Route: 065
     Dates: start: 20180208

REACTIONS (6)
  - Off label use [Unknown]
  - Transfusion reaction [Not Recovered/Not Resolved]
  - Respiratory rate increased [Unknown]
  - Pyrexia [Unknown]
  - Sinus tachycardia [Unknown]
  - Lethargy [Unknown]

NARRATIVE: CASE EVENT DATE: 201802
